FAERS Safety Report 4347339-6 (Version None)
Quarter: 2004Q1

REPORT INFORMATION
  Report Type: 
  Country: None (occurrence: None)
  Receive Date: 20040329
  Receipt Date: 20040209
  Transmission Date: 20041129
  Serious: No
  Sender: FDA-Public Use
  Company Number: USA040258830

PATIENT
  Age: 41 Year
  Sex: Female
  Weight: 55 kg

DRUGS (4)
  1. STRATTERA [Suspect]
     Indication: ATTENTION DEFICIT/HYPERACTIVITY DISORDER
     Dosage: 40 MG/DAY
     Dates: start: 20040126
  2. ADDERALL 10 [Concomitant]
  3. PAXIL [Concomitant]
  4. LINDOXYL (AMBROXOL HYDROCHLORIDE) [Concomitant]

REACTIONS (5)
  - ATTENTION DEFICIT/HYPERACTIVITY DISORDER [None]
  - PILOERECTION [None]
  - PRURITUS [None]
  - RASH [None]
  - SKIN BURNING SENSATION [None]
